FAERS Safety Report 9551335 (Version 1)
Quarter: 2013Q3

REPORT INFORMATION
  Report Type: Spontaneous
  Country: US (occurrence: None)
  Receive Date: 20130724
  Receipt Date: 20130724
  Transmission Date: 20140515
  Serious: Yes (Other)
  Sender: FDA-Public Use
  Company Number: PHEH2012US011635

PATIENT
  Age: 81 Year
  Sex: Female
  Weight: 66.7 kg

DRUGS (3)
  1. GLEEVEC [Suspect]
     Route: 048
     Dates: start: 200906
  2. PROCRIT (ERYTHROPOIETIN) INJECTION [Concomitant]
  3. VENOFER [Concomitant]

REACTIONS (4)
  - Blood pressure systolic increased [None]
  - Diarrhoea [None]
  - Nausea [None]
  - Malaise [None]
